FAERS Safety Report 8379466-0 (Version None)
Quarter: 2012Q2

REPORT INFORMATION
  Report Type: 
  Country: None (occurrence: None)
  Receive Date: 20120523
  Receipt Date: 20120518
  Transmission Date: 20120825
  Serious: Yes (Death, Hospitalization)
  Sender: FDA-Public Use
  Company Number: AR-GENZYME-CERZ-1002295

PATIENT
  Sex: Female
  Weight: 45 kg

DRUGS (2)
  1. CEREZYME [Suspect]
     Dosage: 5 VIALS, UNK
     Route: 042
     Dates: end: 20111028
  2. CEREZYME [Suspect]
     Indication: GAUCHER'S DISEASE
     Dosage: 10 VIALS, UNK
     Route: 042
     Dates: start: 19991201

REACTIONS (4)
  - MALNUTRITION [None]
  - OVARIAN EPITHELIAL CANCER [None]
  - ASCITES [None]
  - BREAST CANCER METASTATIC [None]
